FAERS Safety Report 6380999-7 (Version None)
Quarter: 2009Q3

REPORT INFORMATION
  Report Type: 
  Country: None (occurrence: None)
  Receive Date: 20090929
  Receipt Date: 20081027
  Transmission Date: 20100115
  Serious: No
  Sender: FDA-Public Use
  Company Number: A0753901A

PATIENT
  Age: 9 Year
  Sex: Male

DRUGS (3)
  1. LAMICTAL [Suspect]
     Dosage: 15MG TWICE PER DAY
     Route: 048
     Dates: start: 20080801
  2. STRATTERA [Concomitant]
  3. FOCALIN [Concomitant]

REACTIONS (1)
  - DECREASED APPETITE [None]
